FAERS Safety Report 5710650-8 (Version None)
Quarter: 2008Q2

REPORT INFORMATION
  Report Type: 
  Country: None (occurrence: None)
  Receive Date: 20080415
  Receipt Date: 20080331
  Transmission Date: 20081010
  Serious: Yes (Life-Threatening, Hospitalization, Other)
  Sender: FDA-Public Use
  Company Number: 2008008365

PATIENT
  Sex: Male
  Weight: 62 kg

DRUGS (6)
  1. FRAGMIN [Suspect]
     Dosage: 12500 I.U. (6500 I.U., 2 IN 1 D), SUBCUTANEOUS
     Route: 058
  2. ASPIRIN [Concomitant]
  3. CISPLATIN [Concomitant]
  4. GEMCITABINE [Concomitant]
  5. DURAGESIC [Concomitant]
  6. MARCUMAR [Concomitant]

REACTIONS (5)
  - ANTICOAGULATION DRUG LEVEL BELOW THERAPEUTIC [None]
  - COAGULOPATHY [None]
  - PAIN [None]
  - PULMONARY EMBOLISM [None]
  - TROUSSEAU'S SYNDROME [None]
